FAERS Safety Report 9226929 (Version 1)
Quarter: 2013Q2

REPORT INFORMATION
  Report Type: Spontaneous
  Country: CN (occurrence: None)
  Receive Date: 20130410
  Receipt Date: 20130410
  Transmission Date: 20140414
  Serious: Yes (Other)
  Sender: FDA-Public Use
  Company Number: FK201301030

PATIENT
  Age: 39 Year
  Sex: Male

DRUGS (4)
  1. METHYLPREDNISOLONE (MANUFACTURER UNKNOWN) (METHYLPREDNISOLONE SODIUM SUCCINATE) (METHYLPREDNISOLONE SODIUM SUCCINATE) [Suspect]
     Indication: IMMUNOSUPPRESSION
     Dosage: 1 GM, 1 IN 1 D, UNKNOWN
     Dates: start: 1999
  2. ANTI-THYMOCYTE GLOBULIN [Concomitant]
  3. TACROLIMUS (TACROLIMUS) [Concomitant]
  4. MYCOPHENOLATE MOFETIL (MYCOPHENILATE MOFETIL) [Concomitant]

REACTIONS (6)
  - Arterial thrombosis [None]
  - Fungal infection [None]
  - Transplant rejection [None]
  - Dermatitis [None]
  - Procedural complication [None]
  - Post procedural complication [None]
